FAERS Safety Report 17783111 (Version 1)
Quarter: 2020Q2

REPORT INFORMATION
  Report Type: Spontaneous
  Country: US (occurrence: US)
  Receive Date: 20200514
  Receipt Date: 20200514
  Transmission Date: 20200714
  Serious: No
  Sender: FDA-Public Use
  Company Number: US-ALVOGEN-2020-ALVOGEN-108391

PATIENT
  Sex: Female

DRUGS (1)
  1. BUPRENORPHINE AND NALOXONE [Suspect]
     Active Substance: BUPRENORPHINE HYDROCHLORIDE\NALOXONE HYDROCHLORIDE
     Indication: PRODUCT USED FOR UNKNOWN INDICATION
     Dosage: 8/2 MG
     Route: 060

REACTIONS (6)
  - Pulse abnormal [Unknown]
  - Nausea [Unknown]
  - Anxiety [Unknown]
  - Malaise [Unknown]
  - Heart rate increased [Unknown]
  - Product substitution issue [Unknown]
